FAERS Safety Report 25189742 (Version 3)
Quarter: 2025Q2

REPORT INFORMATION
  Report Type: Spontaneous
  Country: US (occurrence: US)
  Receive Date: 20250411
  Receipt Date: 20250611
  Transmission Date: 20250716
  Serious: No
  Sender: BAYER HEALTHCARE PHARMACEUTICALS INC.
  Company Number: US-BAYER-2025A046569

PATIENT
  Sex: Female

DRUGS (2)
  1. BETASERON [Suspect]
     Active Substance: INTERFERON BETA-1B
     Indication: Multiple sclerosis
  2. DEVICE [Suspect]
     Active Substance: DEVICE
     Indication: Multiple sclerosis

REACTIONS (2)
  - Drug dose omission by device [None]
  - Device power source issue [None]
